FAERS Safety Report 22067735 (Version 1)
Quarter: 2023Q1

REPORT INFORMATION
  Report Type: Spontaneous
  Country: US (occurrence: US)
  Receive Date: 20230307
  Receipt Date: 20230307
  Transmission Date: 20230418
  Serious: Yes (Other)
  Sender: FDA-Public Use
  Company Number: US-CELLTRION INC.-2023US004729

PATIENT

DRUGS (1)
  1. TRUXIMA [Suspect]
     Active Substance: RITUXIMAB-ABBS
     Indication: Lung neoplasm malignant
     Dosage: 825 MG IV DAY 1
     Route: 042
     Dates: start: 20230130

REACTIONS (2)
  - Lung neoplasm malignant [Unknown]
  - Off label use [Unknown]
